FAERS Safety Report 23517927 (Version 1)
Quarter: 2024Q1

REPORT INFORMATION
  Report Type: Spontaneous
  Country: US (occurrence: None)
  Receive Date: 20240213
  Receipt Date: 20240213
  Transmission Date: 20240410
  Serious: Yes (Hospitalization, Other)
  Sender: FDA-Public Use
  Company Number: 2024A030047

PATIENT
  Age: 29327 Day
  Sex: Female

DRUGS (1)
  1. BRILINTA [Suspect]
     Active Substance: TICAGRELOR
     Indication: Cerebrovascular accident
     Route: 048
     Dates: start: 20230701

REACTIONS (7)
  - Venous thrombosis limb [Unknown]
  - Blood test abnormal [Unknown]
  - Coronary artery stenosis [Unknown]
  - Product administration error [Unknown]
  - Peripheral swelling [Unknown]
  - Pain in extremity [Unknown]
  - Haemorrhage [Unknown]

NARRATIVE: CASE EVENT DATE: 20240130
